FAERS Safety Report 7648159-7 (Version None)
Quarter: 2011Q3

REPORT INFORMATION
  Report Type: 
  Country: None (occurrence: None)
  Receive Date: 20110801
  Receipt Date: 20110725
  Transmission Date: 20111222
  Serious: Yes (Other)
  Sender: FDA-Public Use
  Company Number: US-BAYER-2011-046639

PATIENT
  Sex: Female

DRUGS (1)
  1. ONE A DAY WOMEN'S PRENATAL [Suspect]

REACTIONS (1)
  - HAEMATOCHEZIA [None]
